FAERS Safety Report 21812823 (Version 1)
Quarter: 2023Q1

REPORT INFORMATION
  Report Type: Spontaneous
  Country: US (occurrence: US)
  Receive Date: 20230103
  Receipt Date: 20230103
  Transmission Date: 20230418
  Serious: No
  Sender: FDA-Public Use
  Company Number: US-FreseniusKabi-FK202218237

PATIENT
  Sex: Female

DRUGS (6)
  1. FENTANYL [Suspect]
     Active Substance: FENTANYL
     Indication: Back pain
     Route: 037
  2. FENTANYL [Suspect]
     Active Substance: FENTANYL
     Indication: Spinal pain
  3. DILAUDID [Concomitant]
     Active Substance: HYDROMORPHONE HYDROCHLORIDE
     Indication: Back pain
     Dosage: CONCENTRATION: 0.5 MG/ML
     Route: 065
  4. DILAUDID [Concomitant]
     Active Substance: HYDROMORPHONE HYDROCHLORIDE
     Indication: Spinal pain
  5. PRIALT [Concomitant]
     Active Substance: ZICONOTIDE ACETATE
     Indication: Spinal pain
     Dosage: CONCENTRATION: 2 MCG/ML
     Route: 065
  6. PRIALT [Concomitant]
     Active Substance: ZICONOTIDE ACETATE
     Indication: Back pain

REACTIONS (3)
  - Off label use [Unknown]
  - Treatment failure [Unknown]
  - Pruritus [Unknown]

NARRATIVE: CASE EVENT DATE: 20210224
